FAERS Safety Report 14211678 (Version 8)
Quarter: 2018Q1

REPORT INFORMATION
  Report Type: Spontaneous
  Country: US (occurrence: US)
  Receive Date: 20171122
  Receipt Date: 20180321
  Transmission Date: 20180508
  Serious: Yes (Other)
  Sender: FDA-Public Use
  Company Number: US-PFIZER INC-2017502439

PATIENT
  Age: 70 Year
  Sex: Female

DRUGS (5)
  1. METHOTREXATE SODIUM. [Suspect]
     Active Substance: METHOTREXATE SODIUM
     Dosage: UNK UNK, WEEKLY  (7 PILLS ONCE A WEEK)
     Dates: end: 201401
  2. PREDNISONE. [Concomitant]
     Active Substance: PREDNISONE
     Dosage: 5 MG, UNK (AT BREAKFAST )
  3. MOBIC [Concomitant]
     Active Substance: MELOXICAM
     Dosage: 15 MG, DAILY
  4. ENBREL [Suspect]
     Active Substance: ETANERCEPT
     Indication: RHEUMATOID ARTHRITIS
     Dosage: 50 MG, WEEKLY (50 MG INJECTED SUBCUTANEOUSLY ONCE A WEEK)
     Route: 058
     Dates: start: 201308, end: 201401
  5. FOLIC ACID. [Concomitant]
     Active Substance: FOLIC ACID
     Dosage: 1 MG, DAILY (EXCEPT THE DAY SHE TAKES HER METHOTREXATE)

REACTIONS (6)
  - Arthritis infective [Recovered/Resolved]
  - Rheumatoid arthritis [Unknown]
  - Post procedural infection [Recovered/Resolved]
  - Osteoarthritis [Unknown]
  - Condition aggravated [Unknown]
  - Pneumonia [Recovered/Resolved]

NARRATIVE: CASE EVENT DATE: 2014
